FAERS Safety Report 10559632 (Version 1)
Quarter: 2014Q4

REPORT INFORMATION
  Report Type: Spontaneous
  Country: AU (occurrence: None)
  Receive Date: 20141030
  Receipt Date: 20141030
  Transmission Date: 20150529
  Serious: Yes (Hospitalization)
  Sender: FDA-Public Use
  Company Number: IMP_07970_2014

PATIENT
  Age: 39 Year
  Sex: Male

DRUGS (7)
  1. VITAMIN K [Concomitant]
     Active Substance: PHYTONADIONE
  2. PREDNISOLONE. [Concomitant]
     Active Substance: PREDNISOLONE
  3. NIZATIDINE. [Concomitant]
     Active Substance: NIZATIDINE
  4. ATORVASTATIN [Concomitant]
     Active Substance: ATORVASTATIN
  5. THIAMINE [Concomitant]
     Active Substance: THIAMINE
  6. PENTOXIFYLLINE. [Suspect]
     Active Substance: PENTOXIFYLLINE
     Indication: HEPATITIS ALCOHOLIC
     Dosage: 1 WEEK 4 DAYS UNTIL NOT CONTINUING
  7. MULTIVITAMINS [Concomitant]
     Active Substance: VITAMINS

REACTIONS (9)
  - Cholestasis [None]
  - Hepatorenal syndrome [None]
  - Hepatic cirrhosis [None]
  - Lymphocytosis [None]
  - Fluid overload [None]
  - Renal impairment [None]
  - Haemodialysis [None]
  - Drug reaction with eosinophilia and systemic symptoms [None]
  - Neutrophilia [None]
